FAERS Safety Report 15996067 (Version 1)
Quarter: 2019Q1

REPORT INFORMATION
  Report Type: Spontaneous
  Country: US (occurrence: US)
  Receive Date: 20190222
  Receipt Date: 20190222
  Transmission Date: 20190418
  Serious: No
  Sender: FDA-Public Use
  Company Number: US-PERRIGO-18US014435

PATIENT
  Age: 78 Year
  Sex: Female
  Weight: 90.7 kg

DRUGS (2)
  1. LOPERAMIDE HYDROCHLORIDE. [Suspect]
     Active Substance: LOPERAMIDE HYDROCHLORIDE
     Dosage: 6 MG, SINGLE
     Route: 048
     Dates: start: 201712, end: 201712
  2. LOPERAMIDE HYDROCHLORIDE. [Suspect]
     Active Substance: LOPERAMIDE HYDROCHLORIDE
     Indication: IRRITABLE BOWEL SYNDROME
     Dosage: 4 MG ONCE,, THEN 6 MG ONCE
     Route: 048
     Dates: start: 201712, end: 201712

REACTIONS (2)
  - Abdominal pain upper [Recovered/Resolved]
  - Off label use [Recovered/Resolved]

NARRATIVE: CASE EVENT DATE: 201712
